FAERS Safety Report 6336898-X (Version None)
Quarter: 2009Q3

REPORT INFORMATION
  Report Type: 
  Country: None (occurrence: None)
  Receive Date: 20090901
  Receipt Date: 20090824
  Transmission Date: 20100115
  Serious: Yes (Other)
  Sender: FDA-Public Use
  Company Number: PHHY2009DE36123

PATIENT
  Sex: Male

DRUGS (1)
  1. FORADIL [Suspect]

REACTIONS (1)
  - CARDIAC HYPERTROPHY [None]
